FAERS Safety Report 15578561 (Version 1)
Quarter: 2018Q4

REPORT INFORMATION
  Report Type: Spontaneous
  Country: US (occurrence: US)
  Receive Date: 20181029
  Receipt Date: 20181029
  Transmission Date: 20190205
  Serious: Yes (Hospitalization)
  Sender: FDA-Public Use
  Company Number: None

PATIENT
  Age: 53 Year
  Sex: Male

DRUGS (2)
  1. WARFARIN [Suspect]
     Active Substance: WARFARIN
     Dates: start: 20150914
  2. ENOXAPARIN [Suspect]
     Active Substance: ENOXAPARIN
     Route: 058
     Dates: start: 20180412, end: 20180415

REACTIONS (6)
  - Retroperitoneal haematoma [None]
  - Abdominal pain [None]
  - Diarrhoea [None]
  - Nausea [None]
  - International normalised ratio increased [None]
  - Vomiting [None]

NARRATIVE: CASE EVENT DATE: 20180415
